FAERS Safety Report 14940471 (Version 1)
Quarter: 2018Q2

REPORT INFORMATION
  Report Type: Report from Study
  Country: US (occurrence: US)
  Receive Date: 20180525
  Receipt Date: 20180525
  Transmission Date: 20180711
  Serious: Yes (Other)
  Sender: FDA-Public Use
  Company Number: US-GILEAD-2018-0328459

PATIENT
  Age: 67 Year
  Sex: Female

DRUGS (2)
  1. ADEMPAS [Concomitant]
     Active Substance: RIOCIGUAT
  2. AMBRISENTAN [Suspect]
     Active Substance: AMBRISENTAN
     Indication: PRODUCT USED FOR UNKNOWN INDICATION
     Dosage: 10 MG, QD
     Route: 065
     Dates: start: 20170331

REACTIONS (10)
  - Oedema peripheral [Not Recovered/Not Resolved]
  - Pneumonia [Unknown]
  - Peripheral swelling [Not Recovered/Not Resolved]
  - Paraesthesia oral [Unknown]
  - Joint swelling [Not Recovered/Not Resolved]
  - Dyspnoea exertional [Not Recovered/Not Resolved]
  - Dyspnoea [Not Recovered/Not Resolved]
  - Candida infection [Unknown]
  - Headache [Not Recovered/Not Resolved]
  - Swollen tongue [Unknown]

NARRATIVE: CASE EVENT DATE: 20180411
